FAERS Safety Report 9912421 (Version 2)
Quarter: 2014Q1

REPORT INFORMATION
  Report Type: Spontaneous
  Country: IE (occurrence: IE)
  Receive Date: 20140220
  Receipt Date: 20140314
  Transmission Date: 20141002
  Serious: Yes (Death, Hospitalization)
  Sender: FDA-Public Use
  Company Number: IE-AMGEN-IRLSP2014010833

PATIENT
  Age: 81 Year
  Sex: Male

DRUGS (1)
  1. ARANESP [Suspect]
     Indication: RENAL FAILURE CHRONIC
     Dosage: 40 MUG, Q2WK
     Route: 058
     Dates: start: 20140131

REACTIONS (2)
  - Cardiac pacemaker insertion [Unknown]
  - Death [Fatal]
